FAERS Safety Report 5033086-4 (Version None)
Quarter: 2006Q2

REPORT INFORMATION
  Report Type: 
  Country: None (occurrence: None)
  Receive Date: 20060620
  Receipt Date: 20060612
  Transmission Date: 20061013
  Serious: Yes (Other)
  Sender: FDA-Public Use
  Company Number: US200601002014

PATIENT
  Age: 41 Year
  Sex: Female
  Weight: 79.4 kg

DRUGS (1)
  1. ZYPREXA [Suspect]
     Indication: DEPRESSION
     Dosage: 3/D, ORAL
     Route: 048
     Dates: start: 20000101, end: 20050101

REACTIONS (6)
  - BLOOD GLUCOSE DECREASED [None]
  - DIABETES MELLITUS INSULIN-DEPENDENT [None]
  - DIABETES MELLITUS NON-INSULIN-DEPENDENT [None]
  - LOSS OF CONSCIOUSNESS [None]
  - WEIGHT DECREASED [None]
  - WEIGHT INCREASED [None]
